FAERS Safety Report 9583400 (Version 1)
Quarter: 2013Q4

REPORT INFORMATION
  Report Type: Spontaneous
  Country: US (occurrence: US)
  Receive Date: 20131002
  Receipt Date: 20131002
  Transmission Date: 20140711
  Serious: No
  Sender: FDA-Public Use
  Company Number: US-AMGEN-USASP2013046553

PATIENT
  Age: 58 Year
  Sex: Female
  Weight: 53.52 kg

DRUGS (8)
  1. ENBREL [Suspect]
     Indication: RHEUMATOID ARTHRITIS
     Dosage: 50 MG, QWK
     Route: 058
  2. METHOTREXATE [Concomitant]
     Dosage: 2.5 MG, UNK
  3. AZULFIDINE [Concomitant]
     Dosage: 500 MG, UNK
  4. SYNTHROID [Concomitant]
     Dosage: 25 MUG, UNK
  5. AMITRIPTYLIN [Concomitant]
     Dosage: 25 MG, UNK
  6. MULTIVITAMINS, PLAIN [Concomitant]
     Dosage: UNK
  7. ASPIRIN [Concomitant]
     Dosage: 81 MG, UNK
  8. FOLIC ACID [Concomitant]
     Dosage: UNK

REACTIONS (3)
  - Injection site bruising [Unknown]
  - Injection site rash [Unknown]
  - Injection site warmth [Recovered/Resolved]
